FAERS Safety Report 21960415 (Version 1)
Quarter: 2023Q1

REPORT INFORMATION
  Report Type: Spontaneous
  Country: IN (occurrence: IN)
  Receive Date: 20230207
  Receipt Date: 20230207
  Transmission Date: 20230417
  Serious: Yes (Life-Threatening, Hospitalization, Other)
  Sender: FDA-Public Use
  Company Number: IN-MACLEODS PHARMACEUTICALS US LTD-MAC2023039541

PATIENT

DRUGS (1)
  1. ESCITALOPRAM OXALATE [Suspect]
     Active Substance: ESCITALOPRAM OXALATE
     Indication: Product used for unknown indication
     Dosage: 30 DOSAGE FORM, SINGLE (30 TABLETS OF 10MG INGESTION)
     Route: 048

REACTIONS (5)
  - Pleural effusion [Recovered/Resolved]
  - Metabolic acidosis [Recovered/Resolved]
  - Acute respiratory distress syndrome [Recovered/Resolved]
  - Intentional overdose [Recovered/Resolved]
  - Serotonin syndrome [Recovered/Resolved]
